FAERS Safety Report 15683384 (Version 1)
Quarter: 2018Q4

REPORT INFORMATION
  Report Type: Spontaneous
  Country: IL (occurrence: IL)
  Receive Date: 20181204
  Receipt Date: 20181204
  Transmission Date: 20190205
  Serious: Yes (Hospitalization)
  Sender: FDA-Public Use
  Company Number: IL-TEVA-2018-IL-982591

PATIENT
  Age: 101 Year
  Sex: Female

DRUGS (6)
  1. REMERON [Concomitant]
     Active Substance: MIRTAZAPINE
  2. ZODORM [Concomitant]
  3. CLOPIDOGREL [Suspect]
     Active Substance: CLOPIDOGREL BISULFATE
     Indication: CEREBROVASCULAR ACCIDENT
     Route: 065
     Dates: start: 20180506
  4. AVILAC [Concomitant]
  5. BEKUNIS [Concomitant]
  6. SEROQUEL [Concomitant]
     Active Substance: QUETIAPINE FUMARATE

REACTIONS (2)
  - Epistaxis [Unknown]
  - Thrombocytopenia [Unknown]
